FAERS Safety Report 7374965-2 (Version None)
Quarter: 2011Q1

REPORT INFORMATION
  Report Type: 
  Country: None (occurrence: None)
  Receive Date: 20110325
  Receipt Date: 20110314
  Transmission Date: 20110831
  Serious: Yes (Disabling)
  Sender: FDA-Public Use
  Company Number: PHFR2010GB05264

PATIENT
  Sex: Male
  Weight: 82 kg

DRUGS (3)
  1. CLOZARIL [Suspect]
     Dosage: 50 MG, BID
     Route: 048
  2. CLOZARIL [Suspect]
     Indication: SCHIZOPHRENIA
     Dosage: 400 MG, UNK
     Route: 048
     Dates: start: 20101020
  3. FLUOXETINE [Concomitant]
     Indication: DEPRESSIVE SYMPTOM
     Dosage: 40MG
     Dates: start: 20100401

REACTIONS (2)
  - HYPERSOMNIA [None]
  - SOMNOLENCE [None]
